FAERS Safety Report 8737848 (Version 2)
Quarter: 2012Q4

REPORT INFORMATION
  Report Type: 
  Country: US (occurrence: US)
  Receive Date: 20120822
  Receipt Date: 20121010
  Transmission Date: 20130627
  Serious: Yes (Other)
  Sender: FDA-Public Use
  Company Number: US-009507513-1208USA003685

PATIENT

DRUGS (4)
  1. FOSAMAX [Suspect]
     Dosage: UNK
     Route: 048
     Dates: start: 2002, end: 2010
  2. FOSAMAX [Suspect]
     Dosage: UNK
     Route: 048
     Dates: start: 2002, end: 2010
  3. BONIVA [Suspect]
     Dosage: UNK
     Dates: start: 2002, end: 2010
  4. IBANDRONATE SODIUM [Suspect]
     Dosage: UNK
     Dates: start: 2002, end: 2010

REACTIONS (2)
  - Femur fracture [Unknown]
  - Jaw disorder [Unknown]
